FAERS Safety Report 7730573-2 (Version None)
Quarter: 2011Q3

REPORT INFORMATION
  Report Type: 
  Country: None (occurrence: None)
  Receive Date: 20110906
  Receipt Date: 20110822
  Transmission Date: 20111222
  Serious: Yes (Death, Other)
  Sender: FDA-Public Use
  Company Number: US-BAYER-2011-081222

PATIENT
  Age: 78 Year
  Sex: Male

DRUGS (20)
  1. OPIUM ALKALOIDS TOTAL [Concomitant]
  2. TARCEVA [Suspect]
     Dosage: UNK
     Dates: start: 20100816
  3. LORAZEPAM [Concomitant]
  4. NAPROXEN SODIUM [Suspect]
     Dosage: 220 MG, QD
  5. NEUPOGEN [Suspect]
     Dosage: 480 ?G, QD
     Route: 058
  6. ZOFRAN [Concomitant]
  7. PRILOSEC [Concomitant]
  8. LASIX [Concomitant]
  9. SPIRIVA [Concomitant]
  10. REVLIMID [Suspect]
     Indication: MYELODYSPLASTIC SYNDROME
     Dosage: 5 MG X 28
     Route: 048
     Dates: start: 20090313
  11. PROSCAR [Concomitant]
  12. MULTI-VITAMIN [Concomitant]
  13. DEXAMETHASONE [Concomitant]
  14. POTASSIUM CHLORIDE [Concomitant]
  15. LORTAB [Concomitant]
  16. MUSCLE RELAXANTS [Concomitant]
  17. TERAZOSIN HCL [Concomitant]
  18. ACETYLSALICYLIC ACID SRT [Concomitant]
  19. ATIVAN [Concomitant]
  20. OMEPRAZOLE [Concomitant]

REACTIONS (2)
  - LUNG ADENOCARCINOMA [None]
  - DEATH [None]
